FAERS Safety Report 7145058-4 (Version None)
Quarter: 2010Q4

REPORT INFORMATION
  Report Type: 
  Country: None (occurrence: None)
  Receive Date: 20101208
  Receipt Date: 20101125
  Transmission Date: 20110411
  Serious: Yes (Other)
  Sender: FDA-Public Use
  Company Number: PHHY2010CA80547

PATIENT
  Sex: Female

DRUGS (12)
  1. EXELON [Suspect]
     Indication: DEMENTIA
     Dosage: UNK
     Dates: start: 20101013, end: 20101111
  2. AMLODIPINE [Concomitant]
     Dosage: 10 MG, QD
  3. ATACAND HCT [Concomitant]
     Dosage: 16 MG, QD
  4. HCT [Concomitant]
     Dosage: 12.5 MG, QD
  5. ASPIRIN [Concomitant]
     Dosage: 81 MG, QD
  6. ROSUVASTATIN CALCIUM [Concomitant]
     Dosage: 20 MG, QD
  7. METFORMIN [Concomitant]
     Dosage: 500 MG, TID
  8. DATRIL [Concomitant]
     Dosage: 04 MG, QD
  9. RABEPRAZOLE SODIUM [Concomitant]
     Dosage: 20 MG, QD
  10. AMITRIPTYLINE [Concomitant]
     Dosage: 20 MG, QD
  11. FENTANYL [Concomitant]
     Dosage: 1 PATCH 75 UG EVERY 3 DAYS
  12. HYDROMORPHONE HCL [Concomitant]
     Dosage: 2 MG 1-2 TABLET, QID
     Route: 048

REACTIONS (3)
  - AMNESIA [None]
  - CONFUSIONAL STATE [None]
  - SPEECH DISORDER [None]
